FAERS Safety Report 5908752-6 (Version None)
Quarter: 2008Q4

REPORT INFORMATION
  Report Type: 
  Country: None (occurrence: None)
  Receive Date: 20081006
  Receipt Date: 20080925
  Transmission Date: 20090506
  Serious: Yes (Hospitalization, Disabling)
  Sender: FDA-Public Use
  Company Number: DK-JNJFOC-20080202224

PATIENT
  Sex: Female
  Weight: 65 kg

DRUGS (6)
  1. REMICADE [Suspect]
     Indication: CROHN'S DISEASE
     Route: 042
  2. HUMIRA [Suspect]
     Indication: CROHN'S DISEASE
     Route: 058
  3. SALAZOPYRIN [Suspect]
     Indication: ARTHRALGIA
     Route: 048
  4. BUPRENORPHINE HCL [Concomitant]
  5. PREDNISOLON [Concomitant]
     Route: 048
  6. PREDNISOLON [Concomitant]
     Route: 048

REACTIONS (4)
  - ARTHRALGIA [None]
  - MALAISE [None]
  - NAUSEA [None]
  - SKIN ULCER [None]
